FAERS Safety Report 21131033 (Version 1)
Quarter: 2022Q3

REPORT INFORMATION
  Report Type: Spontaneous
  Country: CA (occurrence: CA)
  Receive Date: 20220726
  Receipt Date: 20220726
  Transmission Date: 20221026
  Serious: Yes (Hospitalization, Other)
  Sender: FDA-Public Use
  Company Number: CA-TEVA-2022-CA-2056965

PATIENT
  Age: 58 Year
  Sex: Female

DRUGS (6)
  1. NAPROXEN [Suspect]
     Active Substance: NAPROXEN
     Indication: Product used for unknown indication
     Route: 065
  2. IBUPROFEN [Suspect]
     Active Substance: IBUPROFEN
     Indication: Frostbite
     Route: 048
  3. ILOPROST [Suspect]
     Active Substance: ILOPROST
     Indication: Frostbite
     Route: 042
  4. CHLORHEXIDINE [Concomitant]
     Active Substance: CHLORHEXIDINE
     Indication: Frostbite
     Route: 061
  5. DIF-TET-ALL (DIPHTHERIA TOXOID ADSORBED/TETANUS TOXOID ADSORBED) [Concomitant]
     Indication: Product used for unknown indication
     Route: 065
  6. ISOPROPYL ALCOHOL [Concomitant]
     Active Substance: ISOPROPYL ALCOHOL
     Indication: Frostbite
     Route: 061

REACTIONS (1)
  - Duodenal ulcer perforation [Unknown]
